FAERS Safety Report 6313341-8 (Version None)
Quarter: 2009Q3

REPORT INFORMATION
  Report Type: 
  Country: None (occurrence: None)
  Receive Date: 20090818
  Receipt Date: 20090817
  Transmission Date: 20100115
  Serious: Yes (Hospitalization)
  Sender: FDA-Public Use
  Company Number: D0062638A

PATIENT
  Sex: Male
  Weight: 92 kg

DRUGS (3)
  1. TRIZIVIR [Suspect]
     Indication: HIV INFECTION
     Route: 048
     Dates: start: 20010515, end: 20090723
  2. KALETRA [Suspect]
     Indication: HIV INFECTION
     Route: 048
     Dates: start: 20010515
  3. METOHEXAL [Concomitant]
     Indication: HYPERTENSION
     Dosage: .5MG PER DAY
     Route: 065
     Dates: start: 20060126

REACTIONS (2)
  - MYOCARDIAL INFARCTION [None]
  - STENT PLACEMENT [None]
